FAERS Safety Report 4498909-6 (Version None)
Quarter: 2004Q4

REPORT INFORMATION
  Report Type: 
  Country: None (occurrence: None)
  Receive Date: 20041110
  Receipt Date: 20041110
  Transmission Date: 20050328
  Serious: Yes (Life-Threatening, Hospitalization)
  Sender: FDA-Public Use
  Company Number: None

PATIENT
  Age: 77 Year
  Sex: Male
  Weight: 72.5755 kg

DRUGS (4)
  1. VIOXX [Suspect]
     Dosage: 25 MG PO X 1/DAY
     Route: 048
  2. ZOCOR [Concomitant]
  3. CARDIZEM CD [Concomitant]
  4. GLUCOPHAGE [Concomitant]

REACTIONS (3)
  - ATRIAL FIBRILLATION [None]
  - CEREBROVASCULAR ACCIDENT [None]
  - CONVULSION [None]
